FAERS Safety Report 6265202-0 (Version None)
Quarter: 2009Q3

REPORT INFORMATION
  Report Type: 
  Country: None (occurrence: None)
  Receive Date: 20090713
  Receipt Date: 20090701
  Transmission Date: 20100115
  Serious: Yes (Hospitalization)
  Sender: FDA-Public Use
  Company Number: KR-ROCHE-574474

PATIENT
  Sex: Male
  Weight: 60.7 kg

DRUGS (1)
  1. METHOXY POLYETHYLENE GLYCOL-EPOETIN BETA [Suspect]
     Dosage: LAST DOSE PRIOR TO SAE: 18/07/08
     Route: 042
     Dates: start: 20080215

REACTIONS (3)
  - DEMENTIA [None]
  - NORMAL PRESSURE HYDROCEPHALUS [None]
  - PLEURAL EFFUSION [None]
